FAERS Safety Report 9242542 (Version 2)
Quarter: 2013Q2

REPORT INFORMATION
  Report Type: Spontaneous
  Country: DK (occurrence: FR)
  Receive Date: 20130419
  Receipt Date: 20130501
  Transmission Date: 20140414
  Serious: Yes (Hospitalization)
  Sender: FDA-Public Use
  Company Number: FR-FRI-1000044483

PATIENT
  Age: 86 Year
  Sex: Male

DRUGS (4)
  1. CITALOPRAM [Suspect]
     Indication: DEPRESSION
     Dosage: 1 DF
     Route: 048
     Dates: start: 201112
  2. PREVISCAN [Suspect]
     Indication: ATRIAL FIBRILLATION
     Dosage: 0.25 AND 0.5 DF QOD
     Route: 048
     Dates: end: 20120321
  3. AMIODARONE [Concomitant]
     Dosage: 0.5 DF
     Route: 048
  4. SERESTA [Concomitant]
     Dosage: 3 DF
     Route: 048
     Dates: end: 20120321

REACTIONS (2)
  - Haemorrhagic anaemia [Recovered/Resolved]
  - International normalised ratio increased [Recovered/Resolved]
